FAERS Safety Report 5153540-4 (Version None)
Quarter: 2006Q4

REPORT INFORMATION
  Report Type: 
  Country: None (occurrence: None)
  Receive Date: 20061114
  Receipt Date: 20061101
  Transmission Date: 20070319
  Serious: Yes (Hospitalization)
  Sender: FDA-Public Use
  Company Number: BG-2006-030486

PATIENT
  Age: 23 Year
  Sex: Female

DRUGS (1)
  1. MIRENA [Suspect]
     Indication: CONTRACEPTION
     Dosage: 20 UG/DAY, CONT, INTRA-UTERINE
     Route: 015
     Dates: start: 20040706, end: 20061012

REACTIONS (8)
  - ADHESION [None]
  - CARBOHYDRATE ANTIGEN 125 INCREASED [None]
  - HYPOMENORRHOEA [None]
  - OOPHORITIS [None]
  - OVARIAN ADENOMA [None]
  - OVARIAN CYST [None]
  - OVARIAN FIBROSIS [None]
  - SALPINGITIS [None]
